FAERS Safety Report 5075333-9 (Version None)
Quarter: 2006Q3

REPORT INFORMATION
  Report Type: 
  Country: None (occurrence: None)
  Receive Date: 20060804
  Receipt Date: 20060725
  Transmission Date: 20061208
  Serious: Yes (Death)
  Sender: FDA-Public Use
  Company Number: 2006091565

PATIENT
  Age: 45 Year
  Sex: Male

DRUGS (2)
  1. ZYVOX [Suspect]
     Indication: STAPHYLOCOCCAL INFECTION
     Dosage: 600 MG, INTRAVENOUS
     Route: 042
     Dates: start: 20060721, end: 20060721
  2. VANCOMYCIN HYDROCHLORIDE [Concomitant]

REACTIONS (5)
  - ANGIOPATHY [None]
  - OESOPHAGEAL VARICES HAEMORRHAGE [None]
  - PHLEBITIS [None]
  - PYREXIA [None]
  - SHOCK HAEMORRHAGIC [None]
